FAERS Safety Report 5015408-3 (Version None)
Quarter: 2006Q2

REPORT INFORMATION
  Report Type: 
  Country: None (occurrence: None)
  Receive Date: 20060530
  Receipt Date: 20060530
  Transmission Date: 20061013
  Serious: Yes (Other)
  Sender: FDA-Public Use
  Company Number: None

PATIENT
  Age: 49 Year
  Sex: Male
  Weight: 106.1 kg

DRUGS (14)
  1. SIMVASTATIN [Suspect]
  2. ASPIRIN [Concomitant]
  3. BACLOFEN [Concomitant]
  4. MELOXICAM [Concomitant]
  5. NIACIN (NIASPAN-KOS) [Concomitant]
  6. CLOPIDOGREL BISULFATE [Concomitant]
  7. FISH OIL [Concomitant]
  8. OMEPRAZOLE [Concomitant]
  9. METOPROLOL SUCCINATE [Concomitant]
  10. HYDROCODONE 5/ACETAMINOPHEN [Concomitant]
  11. SELENIUM SULFIDE [Concomitant]
  12. BUSPIRONE HCL [Concomitant]
  13. CITALOPRAM HYDROBROMIDE [Concomitant]
  14. METRONIDAZOLE [Concomitant]

REACTIONS (1)
  - LIVER FUNCTION TEST ABNORMAL [None]
